FAERS Safety Report 6150013-7 (Version None)
Quarter: 2009Q2

REPORT INFORMATION
  Report Type: 
  Country: None (occurrence: None)
  Receive Date: 20090409
  Receipt Date: 20090331
  Transmission Date: 20091009
  Serious: Yes (Disabling)
  Sender: FDA-Public Use
  Company Number: B0567746A

PATIENT
  Sex: Female

DRUGS (7)
  1. ALKERAN [Suspect]
     Indication: MULTIPLE MYELOMA
     Dosage: 10MG CYCLIC
     Route: 048
     Dates: start: 20080716
  2. ZYLORIC [Suspect]
     Dosage: 300MG PER DAY
     Route: 048
     Dates: start: 20080701
  3. CORTANCYL [Suspect]
     Indication: MULTIPLE MYELOMA
     Dosage: 40MG PER DAY
     Route: 048
     Dates: start: 20080716
  4. THALIDOMIDE [Suspect]
     Indication: MULTIPLE MYELOMA
     Dosage: 100MG PER DAY
     Route: 065
     Dates: start: 20080716, end: 20081010
  5. ZOMETA [Suspect]
     Indication: MULTIPLE MYELOMA
     Route: 065
     Dates: start: 20080901, end: 20080901
  6. NEORECORMON [Suspect]
     Dosage: 60000IU WEEKLY
     Route: 065
     Dates: start: 20080701, end: 20081010
  7. HUMALOG [Suspect]
     Route: 065
     Dates: start: 20080715

REACTIONS (5)
  - ANAEMIA [None]
  - HAEMATOTOXICITY [None]
  - PANCYTOPENIA [None]
  - RETINAL ARTERY THROMBOSIS [None]
  - VISUAL ACUITY REDUCED [None]
